FAERS Safety Report 7247617-7 (Version None)
Quarter: 2011Q1

REPORT INFORMATION
  Report Type: 
  Country: None (occurrence: None)
  Receive Date: 20110127
  Receipt Date: 20110119
  Transmission Date: 20110831
  Serious: Yes (Hospitalization)
  Sender: FDA-Public Use
  Company Number: US-SANOFI-AVENTIS-2011SA004244

PATIENT
  Age: 88 Year
  Sex: Female

DRUGS (3)
  1. LANTUS [Suspect]
     Indication: TYPE 2 DIABETES MELLITUS
     Route: 058
     Dates: start: 20100901
  2. LANTUS [Suspect]
     Dosage: DOSE:6 UNIT(S)
     Route: 058
  3. SOLOSTAR [Suspect]
     Indication: TYPE 2 DIABETES MELLITUS
     Dates: start: 20100901

REACTIONS (5)
  - PNEUMONIA [None]
  - HYPOACUSIS [None]
  - DIARRHOEA [None]
  - GASTROINTESTINAL INFECTION [None]
  - VISUAL ACUITY REDUCED [None]
